FAERS Safety Report 20735125 (Version 6)
Quarter: 2022Q2

REPORT INFORMATION
  Report Type: Report from Study
  Country: CN (occurrence: CN)
  Receive Date: 20220421
  Receipt Date: 20220623
  Transmission Date: 20220720
  Serious: Yes (Hospitalization, Other)
  Sender: FDA-Public Use
  Company Number: CN-BoehringerIngelheim-2022-BI-165569

PATIENT
  Age: 60 Year
  Sex: Male
  Weight: 77 kg

DRUGS (13)
  1. NINTEDANIB [Suspect]
     Active Substance: NINTEDANIB
     Indication: Interstitial lung disease
     Route: 048
     Dates: start: 20190704
  2. OMEPRAZOLE [Concomitant]
     Active Substance: OMEPRAZOLE
     Indication: Prophylaxis
     Route: 048
     Dates: start: 2022
  3. OMEPRAZOLE [Concomitant]
     Active Substance: OMEPRAZOLE
     Dosage: CONTINUOUS MEDIUM
     Route: 048
     Dates: start: 2022
  4. METOPROLOL [Concomitant]
     Active Substance: METOPROLOL
     Indication: Hypertension
     Route: 048
     Dates: start: 20220304
  5. METOPROLOL [Concomitant]
     Active Substance: METOPROLOL
     Indication: Heart rate abnormal
  6. PREDNISONE ACETATE TABLET [Concomitant]
     Indication: Prophylaxis
     Route: 048
     Dates: start: 2022
  7. PREDNISONE ACETATE TABLET [Concomitant]
     Indication: Interstitial lung disease
     Route: 048
     Dates: start: 20220312, end: 20220327
  8. PREDNISONE ACETATE TABLET [Concomitant]
     Route: 048
     Dates: start: 20220328, end: 20220403
  9. PREDNISONE ACETATE TABLET [Concomitant]
     Route: 048
     Dates: start: 20220404, end: 20220410
  10. PREDNISONE ACETATE TABLET [Concomitant]
     Route: 048
     Dates: start: 20220411, end: 2022
  11. PREDNISONE ACETATE TABLET [Concomitant]
     Route: 048
     Dates: start: 202205
  12. Aspirin enteric coated tablet [Concomitant]
     Indication: Prophylaxis
     Route: 048
     Dates: start: 20220304
  13. ATORVASTATIN CALCIUM [Concomitant]
     Active Substance: ATORVASTATIN CALCIUM
     Indication: Prophylaxis
     Route: 048
     Dates: start: 20220304

REACTIONS (2)
  - Cerebral infarction [Not Recovered/Not Resolved]
  - Upper gastrointestinal haemorrhage [Not Recovered/Not Resolved]

NARRATIVE: CASE EVENT DATE: 20220304
